FAERS Safety Report 6978132-3 (Version None)
Quarter: 2010Q3

REPORT INFORMATION
  Report Type: 
  Country: None (occurrence: None)
  Receive Date: 20100913
  Receipt Date: 20100817
  Transmission Date: 20110219
  Serious: Yes (Hospitalization)
  Sender: FDA-Public Use
  Company Number: US-BAYER-201016041NA

PATIENT
  Age: 27 Year
  Sex: Female
  Weight: 73 kg

DRUGS (3)
  1. YAZ [Suspect]
     Indication: ACNE
     Route: 048
     Dates: start: 20080501, end: 20090201
  2. YASMIN [Suspect]
     Indication: ACNE
     Route: 048
     Dates: start: 20050501, end: 20061201
  3. NUVARING [Concomitant]
     Dates: start: 20091201, end: 20100301

REACTIONS (2)
  - BILIARY COLIC [None]
  - CHOLELITHIASIS [None]
